FAERS Safety Report 24855336 (Version 1)
Quarter: 2025Q1

REPORT INFORMATION
  Report Type: Spontaneous
  Country: US (occurrence: US)
  Receive Date: 20250117
  Receipt Date: 20250117
  Transmission Date: 20250408
  Serious: Yes (Hospitalization, Other)
  Sender: SANDOZ
  Company Number: US-002147023-NVSC2024US230632

PATIENT
  Age: 64 Year
  Sex: Female

DRUGS (15)
  1. FASLODEX [Suspect]
     Active Substance: FULVESTRANT
     Dosage: 100 MG, QD
     Route: 048
  2. FASLODEX [Suspect]
     Active Substance: FULVESTRANT
     Dosage: 100 MG, QD 21/7
     Route: 048
     Dates: start: 20210408
  3. FASLODEX [Suspect]
     Active Substance: FULVESTRANT
     Indication: Breast cancer
     Route: 065
     Dates: start: 201704
  4. FASLODEX [Suspect]
     Active Substance: FULVESTRANT
     Route: 065
     Dates: start: 20240921
  5. FASLODEX [Suspect]
     Active Substance: FULVESTRANT
     Route: 065
     Dates: start: 201811
  6. FASLODEX [Suspect]
     Active Substance: FULVESTRANT
     Route: 065
     Dates: start: 201905
  7. IBRANCE [Suspect]
     Active Substance: PALBOCICLIB
     Dosage: 100 MG, QD (100 MG DAILY ON DAYS 1 THROUGH 21 OF EACH 28 DAY CYCLE)
     Route: 048
     Dates: start: 20240921
  8. IBRANCE [Suspect]
     Active Substance: PALBOCICLIB
     Dosage: 100 MG, QD (100 MG, QD ORALLY ON DAYS 1 THROUGH 21 OF EACH 28 DAY CYCLE)
     Route: 048
     Dates: start: 20210408
  9. IBRANCE [Suspect]
     Active Substance: PALBOCICLIB
     Dosage: 100 MG, QD (TAKE 1 TABLET (100 MG TOTAL) BY MOUTH DAILY ON DAYS 1 THROUGH 21 OF EACH 28 DAY CYCLE. S
     Route: 048
     Dates: start: 20240223
  10. IBRANCE [Suspect]
     Active Substance: PALBOCICLIB
     Indication: Breast cancer
     Route: 065
     Dates: start: 201704
  11. IBRANCE [Suspect]
     Active Substance: PALBOCICLIB
     Route: 065
     Dates: start: 201811
  12. IBRANCE [Suspect]
     Active Substance: PALBOCICLIB
     Route: 065
     Dates: start: 201905
  13. ZOMETA [Suspect]
     Active Substance: ZOLEDRONIC ACID
     Indication: Breast cancer
     Dosage: UNK, Q3MO ( (Q (EVERY) 3 MONTH))
     Route: 065
     Dates: start: 201704
  14. ZOMETA [Suspect]
     Active Substance: ZOLEDRONIC ACID
     Route: 065
     Dates: start: 201811
  15. ZOMETA [Suspect]
     Active Substance: ZOLEDRONIC ACID
     Route: 065
     Dates: start: 201905

REACTIONS (7)
  - COVID-19 [Unknown]
  - Breast cancer [Unknown]
  - Neutropenia [Unknown]
  - Malignant neoplasm progression [Unknown]
  - Dyspnoea exertional [Unknown]
  - Back pain [Unknown]
  - Drug hypersensitivity [Unknown]
